FAERS Safety Report 19364642 (Version 1)
Quarter: 2021Q2

REPORT INFORMATION
  Report Type: Spontaneous
  Country: US (occurrence: US)
  Receive Date: 20210603
  Receipt Date: 20210603
  Transmission Date: 20210717
  Serious: Yes (Life-Threatening, Disabling, Other)
  Sender: FDA-Public Use
  Company Number: None

PATIENT
  Age: 43 Year
  Sex: Male
  Weight: 102.6 kg

DRUGS (1)
  1. PAXIL [Suspect]
     Active Substance: PAROXETINE HYDROCHLORIDE
     Indication: DEPRESSION
     Dosage: ?          QUANTITY:1 TABLET(S);?
     Route: 048
     Dates: start: 20170228, end: 20210601

REACTIONS (7)
  - Aggression [None]
  - Depressed mood [None]
  - Electric shock sensation [None]
  - Suicide attempt [None]
  - Anger [None]
  - Liver injury [None]
  - Suicidal ideation [None]

NARRATIVE: CASE EVENT DATE: 20210601
